FAERS Safety Report 9780234 (Version 1)
Quarter: 2013Q4

REPORT INFORMATION
  Report Type: Spontaneous
  Country: US (occurrence: US)
  Receive Date: 20131223
  Receipt Date: 20131223
  Transmission Date: 20140711
  Serious: No
  Sender: FDA-Public Use
  Company Number: US-009507513-1312USA006760

PATIENT
  Age: 50 Year
  Sex: Male

DRUGS (4)
  1. AZASITE [Suspect]
     Indication: BLEPHARITIS
     Dosage: UNK
     Dates: start: 201112
  2. COSOPT PF [Concomitant]
  3. DOXYCYCLINE [Concomitant]
  4. COSOPT PF [Concomitant]

REACTIONS (3)
  - Drug dose omission [Unknown]
  - Off label use [Unknown]
  - Product quality issue [Unknown]
